FAERS Safety Report 25098952 (Version 1)
Quarter: 2025Q1

REPORT INFORMATION
  Report Type: Spontaneous
  Country: US (occurrence: US)
  Receive Date: 20250320
  Receipt Date: 20250320
  Transmission Date: 20250409
  Serious: No
  Sender: Haleon PLC
  Company Number: US-HALEON-2234054

PATIENT
  Age: 35 Year
  Sex: Female

DRUGS (1)
  1. SENSODYNE EXTRA WHITENING [Suspect]
     Active Substance: POTASSIUM NITRATE\SODIUM FLUORIDE
     Indication: Tooth whitening
     Dosage: EXPDATE:20260330
     Dates: start: 20250226

REACTIONS (1)
  - Drug ineffective [Unknown]
